FAERS Safety Report 24446667 (Version 1)
Quarter: 2024Q4

REPORT INFORMATION
  Report Type: Spontaneous
  Country: US (occurrence: US)
  Receive Date: 20241016
  Receipt Date: 20241016
  Transmission Date: 20250115
  Serious: Yes (Death)
  Sender: LUNDBECK
  Company Number: US-LUNDBECK-DKLU4005497

PATIENT

DRUGS (6)
  1. SABRIL [Suspect]
     Active Substance: VIGABATRIN
     Indication: Lennox-Gastaut syndrome
     Dosage: 21 MILLILITRE
     Route: 048
     Dates: start: 202007
  2. SABRIL [Suspect]
     Active Substance: VIGABATRIN
     Indication: Epilepsy
  3. SABRIL [Suspect]
     Active Substance: VIGABATRIN
     Indication: Status epilepticus
  4. SABRIL [Suspect]
     Active Substance: VIGABATRIN
     Indication: Infantile spasms
  5. SABRIL [Suspect]
     Active Substance: VIGABATRIN
     Indication: Seizure
  6. EPIDIOLEX [Concomitant]
     Active Substance: CANNABIDIOL
     Indication: Product used for unknown indication
     Route: 048

REACTIONS (1)
  - Death [Fatal]

NARRATIVE: CASE EVENT DATE: 20240925
